FAERS Safety Report 24444461 (Version 2)
Quarter: 2024Q4

REPORT INFORMATION
  Report Type: Report from Study
  Country: US (occurrence: US)
  Receive Date: 20241016
  Receipt Date: 20241017
  Transmission Date: 20250114
  Serious: No
  Sender: ROCHE
  Company Number: US-ROCHE-2729218

PATIENT
  Age: 50 Year
  Sex: Male

DRUGS (3)
  1. RITUXAN [Suspect]
     Active Substance: RITUXIMAB
     Indication: Encephalopathy
     Route: 065
     Dates: start: 202012
  2. RITUXAN [Suspect]
     Active Substance: RITUXIMAB
     Indication: Susac^s syndrome
  3. RITUXAN [Suspect]
     Active Substance: RITUXIMAB
     Indication: Confusional state
     Dosage: VIAL
     Route: 042

REACTIONS (2)
  - Off label use [Unknown]
  - Fatigue [Recovered/Resolved]
